FAERS Safety Report 4687752-0 (Version None)
Quarter: 2005Q2

REPORT INFORMATION
  Report Type: 
  Country: None (occurrence: None)
  Receive Date: 20050610
  Receipt Date: 20050601
  Transmission Date: 20051028
  Serious: Yes (Other)
  Sender: FDA-Public Use
  Company Number: US-GLAXOSMITHKLINE-A0560683A

PATIENT
  Age: 51 Year
  Sex: Female
  Weight: 95 kg

DRUGS (3)
  1. AQUAFRESH FLUORIDE PROTECTION TOOTHPASTE TUBE [Suspect]
     Indication: DENTAL CLEANING
     Dates: start: 19760101
  2. AQUAFRESH FLUORIDE PROTECTION TOOTHPASTE [Suspect]
     Indication: DENTAL CLEANING
  3. ZYRTEC [Concomitant]
     Indication: RHINORRHOEA

REACTIONS (2)
  - ASTHMA [None]
  - TOOTH DISORDER [None]
